FAERS Safety Report 5143984-9 (Version None)
Quarter: 2006Q4

REPORT INFORMATION
  Report Type: 
  Country: None (occurrence: None)
  Receive Date: 20061102
  Receipt Date: 20061102
  Transmission Date: 20070319
  Serious: Yes (Hospitalization)
  Sender: FDA-Public Use
  Company Number: None

PATIENT
  Age: 17 Year
  Sex: Male
  Weight: 54 kg

DRUGS (1)
  1. BICILLIN [Suspect]
     Indication: SYPHILIS
     Dates: start: 20060927, end: 20060927

REACTIONS (5)
  - COMPARTMENT SYNDROME [None]
  - FASCIOTOMY [None]
  - INJECTION SITE PAIN [None]
  - PAIN IN EXTREMITY [None]
  - WOUND DEBRIDEMENT [None]
